FAERS Safety Report 5807034-0 (Version None)
Quarter: 2008Q3

REPORT INFORMATION
  Report Type: 
  Country: None (occurrence: None)
  Receive Date: 20080711
  Receipt Date: 20080702
  Transmission Date: 20090109
  Serious: Yes (Other)
  Sender: FDA-Public Use
  Company Number: BR-JNJFOC-20080505850

PATIENT
  Sex: Female
  Weight: 73 kg

DRUGS (6)
  1. REMICADE [Suspect]
     Route: 042
  2. REMICADE [Suspect]
     Route: 042
  3. REMICADE [Suspect]
     Indication: RHEUMATOID ARTHRITIS
     Route: 042
  4. METHOTREXATE [Concomitant]
     Route: 048
  5. CHLOROQUINE DIPHOSPHATE [Concomitant]
     Route: 048
  6. PREDNISONE TAB [Concomitant]
     Route: 048

REACTIONS (6)
  - ANTINUCLEAR ANTIBODY POSITIVE [None]
  - CHOLELITHIASIS [None]
  - HEPATIC STEATOSIS [None]
  - PRURIGO [None]
  - SMOOTH MUSCLE ANTIBODY [None]
  - URTICARIA [None]
